FAERS Safety Report 19406758 (Version 1)
Quarter: 2021Q2

REPORT INFORMATION
  Report Type: Report from Study
  Country: US (occurrence: US)
  Receive Date: 20210611
  Receipt Date: 20210611
  Transmission Date: 20210717
  Serious: Yes (Hospitalization)
  Sender: FDA-Public Use
  Company Number: US-MORPHOSYS AG-2021-MOR001117-US

PATIENT
  Age: 80 Year
  Sex: Female

DRUGS (1)
  1. MONJUVI [Suspect]
     Active Substance: TAFASITAMAB-CXIX
     Indication: DIFFUSE LARGE B-CELL LYMPHOMA
     Dosage: 700 MILLIGRAM ON DAYS
     Route: 042

REACTIONS (1)
  - Gallbladder operation [Unknown]
